FAERS Safety Report 8356208-6 (Version None)
Quarter: 2012Q2

REPORT INFORMATION
  Report Type: 
  Country: None (occurrence: None)
  Receive Date: 20120514
  Receipt Date: 20120510
  Transmission Date: 20120825
  Serious: Yes (Other)
  Sender: FDA-Public Use
  Company Number: AT-BAYER-2012-045523

PATIENT
  Age: 30 Year
  Sex: Male
  Weight: 92 kg

DRUGS (1)
  1. GADAVIST [Suspect]
     Indication: ANGIOGRAM
     Dosage: 9 ML, ONCE
     Route: 042
     Dates: start: 20120427, end: 20120427

REACTIONS (3)
  - LACRIMATION INCREASED [None]
  - CONJUNCTIVITIS [None]
  - FLUSHING [None]
